FAERS Safety Report 18767896 (Version 1)
Quarter: 2021Q1

REPORT INFORMATION
  Report Type: Spontaneous
  Country: US (occurrence: US)
  Receive Date: 20210121
  Receipt Date: 20210121
  Transmission Date: 20210419
  Serious: Yes (Other)
  Sender: FDA-Public Use
  Company Number: US-BAYER-2021-026226

PATIENT
  Age: 68 Year
  Sex: Male

DRUGS (5)
  1. TOCILIZUMAB. [Concomitant]
     Active Substance: TOCILIZUMAB
  2. HEPARIN [Concomitant]
     Active Substance: HEPARIN SODIUM
  3. ACETYLSALICYLIC ACID [Suspect]
     Active Substance: ASPIRIN
     Indication: SUSPECTED COVID-19
  4. LENZILUMAB. [Concomitant]
     Active Substance: LENZILUMAB
  5. HYDROXYCHLOROQUINE [Concomitant]
     Active Substance: HYDROXYCHLOROQUINE

REACTIONS (3)
  - Product use in unapproved indication [None]
  - Off label use [None]
  - Labelled drug-drug interaction medication error [None]
